FAERS Safety Report 9258118 (Version 1)
Quarter: 2013Q1

REPORT INFORMATION
  Report Type: Spontaneous
  Country: US (occurrence: None)
  Receive Date: 20121212
  Receipt Date: 20121212
  Transmission Date: 20140127
  Serious: No
  Sender: FDA-Public Use
  Company Number: 1209USA004521

PATIENT
  Sex: Male

DRUGS (3)
  1. VICTRELIS [Suspect]
     Indication: HEPATITIS C
     Dosage: 200 MG, FOUR TABS TID, ORAL
     Route: 048
     Dates: start: 20120416
  2. RIBASPHERE [Suspect]
  3. PEGAEYS (PEGINTERFERON ALFA-2A) [Concomitant]

REACTIONS (5)
  - Anaemia [None]
  - Fatigue [None]
  - Haematocrit decreased [None]
  - Nausea [None]
  - Haemoglobin decreased [None]
